FAERS Safety Report 21652354 (Version 9)
Quarter: 2025Q3

REPORT INFORMATION
  Report Type: Spontaneous
  Country: EU (occurrence: EU)
  Receive Date: 20221128
  Receipt Date: 20250825
  Transmission Date: 20251021
  Serious: Yes (Other)
  Sender: PFIZER
  Company Number: None

PATIENT
  Age: 54 Year
  Sex: Male

DRUGS (27)
  1. TOZINAMERAN [Suspect]
     Active Substance: TOZINAMERAN
     Indication: COVID-19 immunisation
     Route: 030
     Dates: start: 202104, end: 202104
  2. PANTOPRAZOLE [Suspect]
     Active Substance: PANTOPRAZOLE
     Dosage: 20 MG, QD, LONG-TERM TREATMENT
     Route: 048
  3. MAGNE B6 [Suspect]
     Active Substance: MAGNESIUM\PYRIDOXINE
     Indication: Mineral supplementation
     Dosage: 2 DF, QD, 1 TABLET X 2 PER DAY - LONG-TERM TREATMENT
     Route: 048
  4. NEORAL [Suspect]
     Active Substance: CYCLOSPORINE
     Indication: Prophylaxis against transplant rejection
     Dosage: 165 MG, QD (90 MG IN THE MORNING AND 75 MG IN THE EVENING - LONG-TERM TREATMENT)
     Route: 048
  5. NEORAL [Suspect]
     Active Substance: CYCLOSPORINE
     Indication: Prophylaxis
  6. FILGRASTIM [Suspect]
     Active Substance: FILGRASTIM
     Indication: Transitional cell carcinoma
     Dosage: 165 MG, QD (90 MG IN THE MORNING AND 75 MG IN THE EVENING - LONG-TERM TREATMENT)
     Route: 048
  7. ALLOPURINOL [Suspect]
     Active Substance: ALLOPURINOL
     Indication: Gouty arthritis
     Dosage: 200 MG PER DAY - LONG-TERM TREATMENT
     Route: 048
  8. VALGANCICLOVIR HYDROCHLORIDE [Suspect]
     Active Substance: VALGANCICLOVIR HYDROCHLORIDE
     Indication: Prophylaxis
     Dosage: 450 MG, 1X/DAY
     Route: 048
  9. MITOMYCIN [Suspect]
     Active Substance: MITOMYCIN
     Indication: Transitional cell carcinoma
     Route: 043
     Dates: start: 202203, end: 202206
  10. VALGANCICLOVIR [Suspect]
     Active Substance: VALGANCICLOVIR
     Indication: Prophylaxis
     Route: 048
  11. VALCYTE [Suspect]
     Active Substance: VALGANCICLOVIR HYDROCHLORIDE
     Indication: Prophylaxis
     Dosage: 450 MG, QD, LONG-TERM TREATMENT
     Route: 048
  12. EVUSHELD [Concomitant]
     Active Substance: CILGAVIMAB\TIXAGEVIMAB
     Indication: COVID-19
     Dosage: 1 DF, 1X/DAY
     Route: 030
     Dates: start: 20220530
  13. INNOHEP [Concomitant]
     Active Substance: TINZAPARIN SODIUM
     Route: 058
  14. HIZENTRA [Concomitant]
     Active Substance: HUMAN IMMUNOGLOBULIN G
     Route: 058
  15. ATOVAQUONE [Concomitant]
     Active Substance: ATOVAQUONE
     Dosage: 75 MG, 2X/DAY
  16. ATOVAQUONE [Concomitant]
     Active Substance: ATOVAQUONE
  17. CALCITOL D3 [Concomitant]
     Dosage: 500 MG, DAILY
  18. THIAMINE HYDROCHLORIDE [Concomitant]
     Active Substance: THIAMINE HYDROCHLORIDE
     Indication: COVID-19
     Dosage: 250 MG, 1X/DAY (1 TABLET IN THE MORNING)
  19. IRBESARTAN [Concomitant]
     Active Substance: IRBESARTAN
     Dosage: 150 MG, 1X/DAY (IN THE MORNING)
  20. MIANSERIN HYDROCHLORIDE [Concomitant]
     Active Substance: MIANSERIN HYDROCHLORIDE
     Dosage: 10 MG, 1X/DAY (1 TABLET IN THE EVENING)
  21. LOPERAMIDE [Concomitant]
     Active Substance: LOPERAMIDE
     Indication: Transitional cell carcinoma
     Dosage: 2 MG, 3X/DAY (1 CAPSULE MORNING, NOON AND EVENING AND THEN AT EACH)
  22. INFLUENZA VIRUS VACCINE [Concomitant]
     Active Substance: INFLUENZA VIRUS VACCINE
     Indication: Immunisation
     Dates: start: 2021, end: 2021
  23. INFLUENZA VIRUS VACCINE [Concomitant]
     Active Substance: INFLUENZA VIRUS VACCINE
     Indication: Transitional cell carcinoma
  24. MIRCERA [Concomitant]
     Active Substance: METHOXY POLYETHYLENE GLYCOL-EPOETIN BETA
     Dosage: 75MG IN A MONTH
  25. CERTICAN [Concomitant]
     Active Substance: EVEROLIMUS
     Indication: Mineral supplementation
     Dosage: 0.75 MG MORNING AND 0.75 MG EVENING TARGET (5-7 NG/ML)
  26. CALCIUM CARBONATE [Concomitant]
     Active Substance: CALCIUM CARBONATE
     Dosage: 500 MG, 1X/DAY
  27. PREDNISONE [Concomitant]
     Active Substance: PREDNISONE
     Indication: Prophylaxis

REACTIONS (1)
  - Neuropathy peripheral [Recovering/Resolving]

NARRATIVE: CASE EVENT DATE: 20220401
